FAERS Safety Report 15011827 (Version 1)
Quarter: 2018Q2

REPORT INFORMATION
  Report Type: Spontaneous
  Country: US (occurrence: US)
  Receive Date: 20180529
  Receipt Date: 20180529
  Transmission Date: 20180711
  Serious: No
  Sender: FDA-Public Use
  Company Number: None

PATIENT

DRUGS (2)
  1. ADRENALIN CHLORIDE SOLN. (EPINEPHRINE NASAL SOLN.) 1MG/ML 30ML [Suspect]
     Active Substance: EPINEPHRINE HYDROCHLORIDE
  2. ADRENALIN [Suspect]
     Active Substance: EPINEPHRINE

REACTIONS (2)
  - Product label confusion [None]
  - Product packaging confusion [None]

NARRATIVE: CASE EVENT DATE: 20180521
